FAERS Safety Report 11278945 (Version 1)
Quarter: 2015Q3

REPORT INFORMATION
  Report Type: Spontaneous
  Country: US (occurrence: US)
  Receive Date: 20150717
  Receipt Date: 20150717
  Transmission Date: 20151125
  Serious: No
  Sender: FDA-Public Use
  Company Number: US-ENDO PHARMACEUTICALS INC.-2015-000330

PATIENT
  Age: 76 Year
  Sex: Male

DRUGS (1)
  1. LISINOPRIL TABLETS 5MG [Suspect]
     Active Substance: LISINOPRIL
     Indication: HYPERTENSION
     Route: 048
     Dates: start: 20150331

REACTIONS (3)
  - Blood pressure decreased [Not Recovered/Not Resolved]
  - Therapeutic response increased [Not Recovered/Not Resolved]
  - Product quality issue [Not Recovered/Not Resolved]

NARRATIVE: CASE EVENT DATE: 20150401
